FAERS Safety Report 8361869 (Version 5)
Quarter: 2013Q3

REPORT INFORMATION
  Report Type: Report from Study
  Country: JP (occurrence: JP)
  Receive Date: 20120130
  Receipt Date: 20130802
  Transmission Date: 20140515
  Serious: Yes (Disabling, Other)
  Sender: FDA-Public Use
  Company Number: PHHY2012JP004896

PATIENT
  Age: 73 Year
  Sex: Male

DRUGS (7)
  1. AFINITOR [Suspect]
     Indication: METASTATIC RENAL CELL CARCINOMA
     Dosage: 10 MG, DAILY
     Route: 048
     Dates: start: 20110802, end: 20110911
  2. AFINITOR [Suspect]
     Dosage: 5 MG, DAILY
     Route: 048
     Dates: start: 20110912, end: 20120326
  3. HARNAL [Concomitant]
     Dosage: 0.2 MG
     Route: 048
     Dates: start: 201001
  4. MICARDIS [Concomitant]
     Dosage: 40 MG
     Route: 048
     Dates: start: 201001
  5. GASTER D [Concomitant]
     Dosage: 20 MG
     Route: 048
     Dates: start: 20120213
  6. ZESULAN [Concomitant]
     Dosage: 3 MG
     Route: 048
     Dates: start: 20120227, end: 20120326
  7. EURAX [Concomitant]
     Dosage: 10 G, UNK
     Route: 061
     Dates: start: 20111031

REACTIONS (4)
  - Dacryostenosis acquired [Unknown]
  - Platelet count decreased [Recovered/Resolved]
  - Metastatic renal cell carcinoma [Not Recovered/Not Resolved]
  - Malignant neoplasm progression [Not Recovered/Not Resolved]
